FAERS Safety Report 4474725-6 (Version None)
Quarter: 2004Q4

REPORT INFORMATION
  Report Type: 
  Country: None (occurrence: None)
  Receive Date: 20041012
  Receipt Date: 20040927
  Transmission Date: 20050328
  Serious: Yes (Life-Threatening, Hospitalization, Disabling, Other)
  Sender: FDA-Public Use
  Company Number: 2003-05678

PATIENT
  Age: 75 Year
  Sex: Male
  Weight: 46 kg

DRUGS (18)
  1. EMTRICITABINE (EMTRICITABINE) TABLET [Suspect]
     Indication: HIV INFECTION
     Dosage: SEE IMAGE
     Route: 048
     Dates: start: 20021106, end: 20030618
  2. EMTRICITABINE (EMTRICITABINE) TABLET [Suspect]
     Indication: HIV INFECTION
     Dosage: SEE IMAGE
     Route: 048
     Dates: start: 20030821
  3. TENOFOVIR DF (TENOFOVIR DISOPROXIL FUMARATE) (TABLET) [Suspect]
     Indication: HIV INFECTION
     Dosage: SEE IMAGE
     Route: 048
     Dates: start: 20021106, end: 20030618
  4. TENOFOVIR DF (TENOFOVIR DISOPROXIL FUMARATE) (TABLET) [Suspect]
     Indication: HIV INFECTION
     Dosage: SEE IMAGE
     Route: 048
     Dates: start: 20030821
  5. LOPINAVIR [Suspect]
     Indication: HIV INFECTION
     Dosage: SEE IMAGE
     Route: 048
     Dates: start: 20021106, end: 20030618
  6. LOPINAVIR [Suspect]
     Indication: HIV INFECTION
     Dosage: SEE IMAGE
     Route: 048
     Dates: start: 20030821
  7. RITONAVIR [Suspect]
     Indication: HIV INFECTION
     Dosage: SEE IMAGE
     Route: 048
     Dates: start: 20021106, end: 20030618
  8. RITONAVIR [Suspect]
     Indication: HIV INFECTION
     Dosage: SEE IMAGE
     Route: 048
     Dates: start: 20030821
  9. BACTRIM [Concomitant]
  10. VITAMIN B12 [Concomitant]
  11. INSULIN [Concomitant]
  12. CALCIUM FOLINATE (CALCIUM FOLINATE) [Concomitant]
  13. OMEPRAZOLE [Concomitant]
  14. BICARBONATE (SODIUM BICARBONATE) [Concomitant]
  15. ERYTHROPOIETIN (ERYTHROPOIETIN) [Concomitant]
  16. IRON (IRON) [Concomitant]
  17. MASTICAL (CALCIUM CARBONATE) [Concomitant]
  18. ALDOCUMAR (WARFARIN SODIUM) [Concomitant]

REACTIONS (6)
  - ACIDOSIS [None]
  - DEHYDRATION [None]
  - DIABETIC NEPHROPATHY [None]
  - HAEMODIALYSIS [None]
  - RENAL FAILURE [None]
  - RENAL FAILURE CHRONIC [None]
